FAERS Safety Report 9954258 (Version 1)
Quarter: 2014Q1

REPORT INFORMATION
  Report Type: Spontaneous
  Country: US (occurrence: US)
  Receive Date: 20140304
  Receipt Date: 20140304
  Transmission Date: 20141002
  Serious: No
  Sender: FDA-Public Use
  Company Number: US-AMGEN-USASP2013087703

PATIENT
  Age: 43 Year
  Sex: Male
  Weight: 113.38 kg

DRUGS (1)
  1. ENBREL [Suspect]
     Indication: PRODUCT USED FOR UNKNOWN INDICATION
     Dosage: 50 MG, EVERY WEEK
     Route: 058
     Dates: start: 20130618, end: 20131206

REACTIONS (2)
  - Laboratory test abnormal [Recovering/Resolving]
  - Liver disorder [Recovering/Resolving]
